FAERS Safety Report 16049510 (Version 1)
Quarter: 2019Q1

REPORT INFORMATION
  Report Type: Spontaneous
  Country: DE (occurrence: DE)
  Receive Date: 20190307
  Receipt Date: 20190307
  Transmission Date: 20190418
  Serious: Yes (Other)
  Sender: FDA-Public Use
  Company Number: DE-MYLANLABS-2019M1021656

PATIENT
  Age: 8 Decade
  Sex: Male
  Weight: 126 kg

DRUGS (43)
  1. DICLOFENAC [Suspect]
     Active Substance: DICLOFENAC
     Indication: GASTROINTESTINAL SOMATIC SYMPTOM DISORDER
     Dosage: MAXIMUM DOSE
     Route: 065
  2. DICLOFENAC [Suspect]
     Active Substance: DICLOFENAC
     Indication: ABDOMINAL PAIN UPPER
  3. CYCLIZINE [Suspect]
     Active Substance: CYCLIZINE
     Indication: GASTROINTESTINAL SOMATIC SYMPTOM DISORDER
     Dosage: MAXIMUM DOSE; THRICE DAILY
     Route: 065
  4. DRONABINOL. [Suspect]
     Active Substance: DRONABINOL
     Indication: NAUSEA
  5. IBUPROFEN. [Suspect]
     Active Substance: IBUPROFEN
     Indication: ABDOMINAL PAIN UPPER
  6. PARACETAMOL/CODEINE [Suspect]
     Active Substance: ACETAMINOPHEN\CODEINE PHOSPHATE
     Indication: ABDOMINAL PAIN UPPER
  7. DIAZEPAM. [Concomitant]
     Active Substance: DIAZEPAM
     Indication: ANXIETY
     Dosage: MAXIMUM DOSE
     Route: 065
  8. HALOPERIDOL. [Suspect]
     Active Substance: HALOPERIDOL
     Indication: NAUSEA
  9. DOMPERIDONE [Suspect]
     Active Substance: DOMPERIDONE
     Indication: GASTROINTESTINAL SOMATIC SYMPTOM DISORDER
     Dosage: MAXIMUM DOSE; THRICE DAILY
     Route: 065
  10. NOVAMINSULFON [Suspect]
     Active Substance: METAMIZOLE
     Indication: ABDOMINAL PAIN UPPER
  11. OPIPRAMOL [Concomitant]
     Active Substance: OPIPRAMOL
     Indication: ANXIETY
     Dosage: MAXIMUM DOSE
     Route: 065
  12. PIPAMPERONE [Concomitant]
     Active Substance: PIPAMPERONE
     Indication: ANXIETY
     Dosage: MAXIMUM DOSE; THRICE DAILY
     Route: 065
  13. METOCLOPRAMIDE. [Suspect]
     Active Substance: METOCLOPRAMIDE
     Indication: GASTROINTESTINAL SOMATIC SYMPTOM DISORDER
     Dosage: MAXIMUM DOSE; THRICE DAILY
     Route: 065
  14. CYCLIZINE [Suspect]
     Active Substance: CYCLIZINE
     Indication: NAUSEA
  15. NOVAMINSULFON [Suspect]
     Active Substance: METAMIZOLE
     Indication: GASTROINTESTINAL SOMATIC SYMPTOM DISORDER
     Dosage: MAXIMUM DOSE; THRICE DAILY
     Route: 065
  16. PHENYLBUTAZONE [Suspect]
     Active Substance: PHENYLBUTAZONE
     Indication: ABDOMINAL PAIN UPPER
  17. LORAZEPAM. [Concomitant]
     Active Substance: LORAZEPAM
     Indication: ANXIETY
     Dosage: MAXIMUM DOSE
     Route: 065
  18. PROMETHAZINE [Concomitant]
     Active Substance: PROMETHAZINE\PROMETHAZINE HYDROCHLORIDE
     Indication: ANXIETY
     Dosage: MAXIMUM DOSE
     Route: 065
  19. LAVENDER OIL [Concomitant]
     Active Substance: LAVENDER OIL
     Indication: ANXIETY
     Dosage: MAXIMUM DOSE
     Route: 065
  20. ONDANSETRON [Suspect]
     Active Substance: ONDANSETRON
     Indication: NAUSEA
  21. QUETIAPINE. [Concomitant]
     Active Substance: QUETIAPINE
     Indication: ANXIETY
     Route: 065
  22. METOCLOPRAMIDE. [Suspect]
     Active Substance: METOCLOPRAMIDE
     Indication: NAUSEA
  23. ALIZAPRIDE [Suspect]
     Active Substance: ALIZAPRIDE
     Indication: GASTROINTESTINAL SOMATIC SYMPTOM DISORDER
     Dosage: MAXIMUM DOSE; THRICE DAILY
     Route: 065
  24. ALIZAPRIDE [Suspect]
     Active Substance: ALIZAPRIDE
     Indication: NAUSEA
  25. PARACETAMOL/CODEINE [Suspect]
     Active Substance: ACETAMINOPHEN\CODEINE PHOSPHATE
     Indication: GASTROINTESTINAL SOMATIC SYMPTOM DISORDER
     Route: 065
  26. RISPERIDONE. [Concomitant]
     Active Substance: RISPERIDONE
     Indication: ANXIETY
     Dosage: MAXIMUM DOSE
     Route: 065
  27. DOMPERIDONE [Suspect]
     Active Substance: DOMPERIDONE
     Indication: NAUSEA
  28. IBUPROFEN. [Suspect]
     Active Substance: IBUPROFEN
     Indication: GASTROINTESTINAL SOMATIC SYMPTOM DISORDER
     Dosage: MAXIMUM DOSE
     Route: 065
  29. SULPIRIDE [Concomitant]
     Active Substance: SULPIRIDE
     Indication: ANXIETY
     Dosage: MAXIMUM DOSE
     Route: 065
  30. SERTRALINE [Concomitant]
     Active Substance: SERTRALINE HYDROCHLORIDE
     Indication: ANXIETY
     Dosage: MAXIMUM DOSE
     Route: 065
  31. ONDANSETRON [Suspect]
     Active Substance: ONDANSETRON
     Indication: GASTROINTESTINAL SOMATIC SYMPTOM DISORDER
     Dosage: MAXIMUM DOSE
     Route: 065
  32. TRAMADOL. [Suspect]
     Active Substance: TRAMADOL
     Indication: GASTROINTESTINAL SOMATIC SYMPTOM DISORDER
     Dosage: 100 MILLIGRAM
     Route: 065
  33. HALOPERIDOL. [Suspect]
     Active Substance: HALOPERIDOL
     Indication: GASTROINTESTINAL SOMATIC SYMPTOM DISORDER
     Dosage: MAXIMUM DOSE; THRICE DAILY
     Route: 065
  34. DEXAMETHASONE. [Suspect]
     Active Substance: DEXAMETHASONE
     Indication: NAUSEA
  35. DOXEPIN [Concomitant]
     Active Substance: DOXEPIN
     Indication: ANXIETY
     Dosage: MAXIMUM DOSE
     Route: 065
  36. AMITRIPTYLINE [Concomitant]
     Active Substance: AMITRIPTYLINE
     Indication: ANXIETY
     Dosage: MAXIMUM DOSE
     Route: 065
  37. VENLAFAXINE [Concomitant]
     Active Substance: VENLAFAXINE HYDROCHLORIDE
     Indication: ANXIETY
     Dosage: MAXIMUM DOSE
     Route: 065
  38. TRAMADOL. [Suspect]
     Active Substance: TRAMADOL
     Indication: ABDOMINAL PAIN UPPER
  39. DEXAMETHASONE. [Suspect]
     Active Substance: DEXAMETHASONE
     Indication: GASTROINTESTINAL SOMATIC SYMPTOM DISORDER
     Dosage: MAXIMUM DOSE
     Route: 065
  40. DRONABINOL. [Suspect]
     Active Substance: DRONABINOL
     Indication: GASTROINTESTINAL SOMATIC SYMPTOM DISORDER
     Dosage: MAXIMUM DOSE; ADMINISTERED AS DROPS
     Route: 065
  41. PHENYLBUTAZONE [Suspect]
     Active Substance: PHENYLBUTAZONE
     Indication: GASTROINTESTINAL SOMATIC SYMPTOM DISORDER
     Dosage: MAXIMUM DOSE
     Route: 065
  42. LEVOMEPROMAZINE [Concomitant]
     Active Substance: LEVOMEPROMAZINE
     Indication: ANXIETY
     Dosage: MAXIMUM DOSE; THRICE DAILY
     Route: 065
  43. PREGABALIN. [Concomitant]
     Active Substance: PREGABALIN
     Indication: ANXIETY
     Route: 065

REACTIONS (1)
  - Drug ineffective [Unknown]
